FAERS Safety Report 10925950 (Version 1)
Quarter: 2015Q1

REPORT INFORMATION
  Report Type: Spontaneous
  Country: CA (occurrence: CA)
  Receive Date: 20150318
  Receipt Date: 20150318
  Transmission Date: 20150721
  Serious: Yes (Other)
  Sender: FDA-Public Use
  Company Number: CA-JNJFOC-20150304373

PATIENT
  Age: 46 Year
  Weight: 73 kg

DRUGS (3)
  1. SOVALDI [Suspect]
     Active Substance: SOFOSBUVIR
     Indication: HEPATITIS C
     Route: 048
     Dates: start: 20140131, end: 20140424
  2. SIMEPREVIR [Suspect]
     Active Substance: SIMEPREVIR
     Indication: HEPATITIS C
     Route: 048
     Dates: start: 20140131, end: 20140424
  3. RIBAVIRIN. [Suspect]
     Active Substance: RIBAVIRIN
     Indication: HEPATITIS C
     Route: 048
     Dates: start: 20140131, end: 20140424

REACTIONS (14)
  - Haemorrhoids [Unknown]
  - Irritability [Unknown]
  - Irritable bowel syndrome [Unknown]
  - Anxiety [Unknown]
  - Dry mouth [Unknown]
  - Agitation [Unknown]
  - Rectal haemorrhage [Unknown]
  - Personality change [Unknown]
  - Thirst [Unknown]
  - Eczema [Unknown]
  - Mental status changes [Unknown]
  - Insomnia [Unknown]
  - Disturbance in attention [Unknown]
  - Fatigue [Unknown]
